FAERS Safety Report 6377162-2 (Version None)
Quarter: 2009Q3

REPORT INFORMATION
  Report Type: 
  Country: None (occurrence: None)
  Receive Date: 20090925
  Receipt Date: 20090916
  Transmission Date: 20100115
  Serious: Yes (Disabling)
  Sender: FDA-Public Use
  Company Number: JP-ELI_LILLY_AND_COMPANY-JP200907004950

PATIENT
  Sex: Male

DRUGS (12)
  1. GEMZAR [Suspect]
     Indication: PANCREATIC CARCINOMA STAGE IV
     Dosage: 1000 MG/M2, UNK
     Route: 042
     Dates: start: 20090601, end: 20090101
  2. GEMZAR [Suspect]
     Dosage: 1400 MG, OTHER
     Route: 042
     Dates: start: 20090101, end: 20090716
  3. TS 1 [Concomitant]
     Indication: PANCREATIC CARCINOMA STAGE IV
     Dosage: UNK, UNK
     Route: 048
     Dates: start: 20090601, end: 20090101
  4. PARIET [Concomitant]
     Dosage: 10 MG, UNK
     Route: 048
  5. LIPITOR [Concomitant]
     Dosage: 5 MG, UNK
     Route: 048
  6. DIOVAN [Concomitant]
     Dosage: 80 MG, UNK
     Route: 048
  7. LORFENAMIN [Concomitant]
     Dosage: 60 MG, UNK
     Route: 048
  8. LASIX [Concomitant]
     Dosage: 40 MG, UNK
     Route: 048
  9. PURSENNID [Concomitant]
     Dosage: 24 MG, UNK
     Route: 048
  10. BERIZYM [Concomitant]
     Dosage: 6 G, UNK
     Route: 048
  11. PANCREATIN [Concomitant]
     Dosage: 3G, UNK
     Route: 048
  12. URSO 250 [Concomitant]
     Dosage: 600 MG, UNK
     Route: 048

REACTIONS (5)
  - CEREBRAL INFARCTION [None]
  - DECREASED APPETITE [None]
  - DEHYDRATION [None]
  - DYSPHAGIA [None]
  - VENOUS THROMBOSIS [None]
